FAERS Safety Report 22282708 (Version 5)
Quarter: 2023Q2

REPORT INFORMATION
  Report Type: Report from Study
  Country: CN (occurrence: CN)
  Receive Date: 20230504
  Receipt Date: 20230530
  Transmission Date: 20230721
  Serious: Yes (Hospitalization)
  Sender: FDA-Public Use
  Company Number: CN-UCBSA-2023021489

PATIENT
  Age: 73 Year
  Sex: Female
  Weight: 68 kg

DRUGS (11)
  1. ROMOSOZUMAB [Suspect]
     Active Substance: ROMOSOZUMAB
     Indication: Osteoporosis
     Dosage: 2.34 MILLILITER, QMO
     Route: 058
     Dates: start: 20220510, end: 20230403
  2. CALCIUM [Concomitant]
     Active Substance: CALCIUM
     Indication: Osteoporosis
     Dosage: 600 MILLIGRAM, ONCE DAILY (QD)
     Route: 048
     Dates: start: 20220420
  3. VITAMIN D NOS [Concomitant]
     Active Substance: VITAMIN D NOS
     Indication: Osteoporosis
     Dosage: 8000 INTERNATIONAL UNIT, ONCE DAILY (QD)
     Dates: start: 20220420
  4. ESTAZOLAM [Concomitant]
     Active Substance: ESTAZOLAM
     Indication: Sleep disorder
     Dosage: 1 MILLIGRAM, ONCE DAILY (QD)
     Route: 048
     Dates: start: 2005
  5. LEVOTHYROXINE SODIUM [Concomitant]
     Active Substance: LEVOTHYROXINE SODIUM
     Indication: Hypothyroidism
     Dosage: 50 MICROGRAM, ONCE DAILY (QD)
     Route: 048
     Dates: start: 2016
  6. ATORVASTATIN CALCIUM [Concomitant]
     Active Substance: ATORVASTATIN CALCIUM
     Dosage: 10 MILLIGRAM, ONCE IN NIGHT
     Route: 048
     Dates: start: 20230310, end: 20230406
  7. ASPIRIN [Concomitant]
     Active Substance: ASPIRIN
     Indication: Cardiac failure chronic
     Dosage: 100 MILLIGRAM, ONCE DAILY (QD)
     Route: 048
     Dates: start: 20230310, end: 20230408
  8. SACUBITRIL\VALSARTAN [Concomitant]
     Active Substance: SACUBITRIL\VALSARTAN
     Indication: Cardiac failure chronic
     Dosage: 100 MILLIGRAM, ONCE DAILY (QD)
     Route: 048
     Dates: start: 20230310, end: 20230406
  9. METOPROLOL SUCCINATE [Concomitant]
     Active Substance: METOPROLOL SUCCINATE
     Indication: Cardiac failure chronic
     Dosage: 47.5 MILLIGRAM, ONCE DAILY (QD)
     Route: 048
     Dates: start: 2019, end: 20230309
  10. METOPROLOL SUCCINATE [Concomitant]
     Active Substance: METOPROLOL SUCCINATE
     Dosage: 47.5 MILLIGRAM, ONCE DAILY (QD)
     Route: 048
     Dates: start: 20230210, end: 20230406
  11. AMLODIPINE BESYLATE AND ATORVASTATIN CALCIUM [Concomitant]
     Active Substance: AMLODIPINE BESYLATE\ATORVASTATIN CALCIUM
     Dosage: 1 TABLET, ONCE DAILY
     Route: 048
     Dates: start: 2016, end: 20230309

REACTIONS (1)
  - Arteriosclerosis coronary artery [Recovered/Resolved]

NARRATIVE: CASE EVENT DATE: 20230412
